FAERS Safety Report 6382149-X (Version None)
Quarter: 2009Q3

REPORT INFORMATION
  Report Type: 
  Country: None (occurrence: None)
  Receive Date: 20090930
  Receipt Date: 20090922
  Transmission Date: 20100115
  Serious: Yes (Life-Threatening, Hospitalization, Other)
  Sender: FDA-Public Use
  Company Number: US-BRISTOL-MYERS SQUIBB COMPANY-14790166

PATIENT
  Sex: Female

DRUGS (11)
  1. METFORMIN HCL [Suspect]
     Route: 064
  2. METOPROLOL TARTRATE [Suspect]
     Dosage: 100MG-PRECONCEPTION,0,14,35,38WEEK INTRAUTERINE PERIOD 50MG-22 AND 29 WEEK
     Route: 064
  3. MONOPRIL [Suspect]
     Route: 064
  4. ATORVASTATIN [Suspect]
     Route: 064
  5. EXENATIDE [Suspect]
     Route: 064
  6. ROSIGLITAZONE [Suspect]
     Route: 064
  7. ASPIRIN [Suspect]
     Route: 064
  8. NITROFURANTOIN [Suspect]
     Route: 064
  9. LANTUS [Suspect]
     Dosage: 34UNITS-0WEEK OF INTRAUTERINE PERIOD 38-14 WEEK 113-27 WEEK 220-29 WEEK 247-35 WEEK 257-38 WEEK
     Route: 064
  10. DILTIAZEM [Concomitant]
     Route: 064
  11. ANTIBIOTICS [Concomitant]
     Route: 064

REACTIONS (2)
  - ENCEPHALOPATHY [None]
  - ESCHERICHIA SEPSIS [None]
